FAERS Safety Report 5059202-6 (Version None)
Quarter: 2006Q3

REPORT INFORMATION
  Report Type: 
  Country: None (occurrence: None)
  Receive Date: 20060722
  Receipt Date: 20060711
  Transmission Date: 20061208
  Serious: Yes (Hospitalization)
  Sender: FDA-Public Use
  Company Number: US-JNJFOC-20060702346

PATIENT
  Sex: Female
  Weight: 71.67 kg

DRUGS (4)
  1. REMICADE [Suspect]
     Indication: COLITIS ULCERATIVE
     Route: 042
  2. IMODIUM A-D [Concomitant]
     Indication: DIARRHOEA
     Dosage: DURATION: SEVERAL YEARS.
  3. LOMOTIL [Concomitant]
     Indication: DIARRHOEA
     Dosage: DURATION: SEVERAL YEARS.
  4. ASACOL [Concomitant]
     Indication: DIARRHOEA

REACTIONS (1)
  - ARTHRITIS [None]
